FAERS Safety Report 4947186-8 (Version None)
Quarter: 2006Q1

REPORT INFORMATION
  Report Type: 
  Country: None (occurrence: None)
  Receive Date: 20060113
  Receipt Date: 20051013
  Transmission Date: 20060701
  Serious: No
  Sender: FDA-Public Use
  Company Number: 2005SP003544

PATIENT
  Sex: Female

DRUGS (2)
  1. LUNESTA [Suspect]
     Indication: NARCOLEPSY
     Dosage: 3 MG
     Dates: start: 20050101
  2. AMBIEN [Concomitant]

REACTIONS (1)
  - INSOMNIA [None]
